FAERS Safety Report 5482857-9 (Version None)
Quarter: 2007Q4

REPORT INFORMATION
  Report Type: 
  Country: None (occurrence: None)
  Receive Date: 20071011
  Receipt Date: 20070928
  Transmission Date: 20080405
  Serious: Yes (Other)
  Sender: FDA-Public Use
  Company Number: US-PFIZER INC-2007062940

PATIENT
  Sex: Male
  Weight: 86.363 kg

DRUGS (5)
  1. CHANTIX [Suspect]
     Indication: SMOKING CESSATION THERAPY
     Dates: start: 20070101, end: 20070101
  2. LITHIUM [Suspect]
     Indication: MENTAL DISORDER
  3. LORAZEPAM [Suspect]
     Indication: SLEEP DISORDER
  4. RISPERDAL [Suspect]
  5. VITAMINS [Concomitant]
     Dosage: FREQ:DAILY

REACTIONS (7)
  - AMNESIA [None]
  - BLADDER DISTENSION [None]
  - DISTURBANCE IN ATTENTION [None]
  - DRUG INEFFECTIVE [None]
  - FEELING ABNORMAL [None]
  - LUNG NEOPLASM MALIGNANT [None]
  - MENTAL DISORDER [None]
